FAERS Safety Report 17684098 (Version 1)
Quarter: 2020Q2

REPORT INFORMATION
  Report Type: Spontaneous
  Country: SE (occurrence: SE)
  Receive Date: 20200420
  Receipt Date: 20200420
  Transmission Date: 20200714
  Serious: Yes (Hospitalization, Other)
  Sender: FDA-Public Use
  Company Number: SE-BRISTOL-MYERS SQUIBB COMPANY-BMS-2020-031483

PATIENT
  Age: 88 Year
  Sex: Male

DRUGS (2)
  1. ELIQUIS [Suspect]
     Active Substance: APIXABAN
     Indication: PRODUCT USED FOR UNKNOWN INDICATION
     Dosage: 2 DOSAGE FORM, BID
     Route: 065
  2. DAKTAR [MICONAZOLE] [Suspect]
     Active Substance: MICONAZOLE
     Indication: FUNGAL SKIN INFECTION
     Dosage: 30 G,  SEVERAL TIMES FOR SEVERAL YEARS
     Route: 065

REACTIONS (5)
  - Viral infection [Unknown]
  - Dry mouth [Unknown]
  - Atrial fibrillation [Unknown]
  - Myocardial infarction [Unknown]
  - Dysphagia [Unknown]
